FAERS Safety Report 21765703 (Version 1)
Quarter: 2022Q4

REPORT INFORMATION
  Report Type: Spontaneous
  Country: MY (occurrence: MY)
  Receive Date: 20221222
  Receipt Date: 20221222
  Transmission Date: 20230113
  Serious: Yes (Other)
  Sender: FDA-Public Use
  Company Number: MY-MYLANLABS-2022M1145257

PATIENT
  Age: 64 Year
  Sex: Male

DRUGS (1)
  1. ARIXTRA [Suspect]
     Active Substance: FONDAPARINUX SODIUM
     Indication: Myocardial infarction
     Dosage: 2.5 MILLIGRAM, QD
     Route: 058

REACTIONS (3)
  - Vomiting [Unknown]
  - Headache [Unknown]
  - Dizziness [Unknown]
